FAERS Safety Report 13646737 (Version 2)
Quarter: 2017Q2

REPORT INFORMATION
  Report Type: Report from Study
  Country: IT (occurrence: IT)
  Receive Date: 20170613
  Receipt Date: 20170625
  Transmission Date: 20170830
  Serious: Yes (Hospitalization)
  Sender: FDA-Public Use
  Company Number: IT-TEVA-776236ACC

PATIENT
  Age: 42 Year
  Sex: Female

DRUGS (4)
  1. LORAZEPAM. [Suspect]
     Active Substance: LORAZEPAM
     Indication: ANXIETY
     Route: 048
  2. QUETIAPINA TEVA - 100 MG COMPRESSE RIVESTITE CON FILM [Concomitant]
     Active Substance: QUETIAPINE FUMARATE
     Indication: PRODUCT USED FOR UNKNOWN INDICATION
  3. EFEXOR - 37,5 MG CAPSULE RIGIDE A RILASCIO PROLUNGATO [Concomitant]
     Active Substance: VENLAFAXINE HYDROCHLORIDE
     Indication: PRODUCT USED FOR UNKNOWN INDICATION
  4. TRANQUIRIT - 0,5 % GOCCE ORALI SOLUZIONE [Concomitant]
     Indication: PRODUCT USED FOR UNKNOWN INDICATION

REACTIONS (4)
  - Speech disorder [Recovered/Resolved]
  - Toxicity to various agents [Recovered/Resolved]
  - Sopor [Recovered/Resolved]
  - Drug use disorder [Recovered/Resolved]

NARRATIVE: CASE EVENT DATE: 20170304
